FAERS Safety Report 8838926 (Version 3)
Quarter: 2012Q4

REPORT INFORMATION
  Report Type: 
  Country: CH (occurrence: CH)
  Receive Date: 20121015
  Receipt Date: 20121128
  Transmission Date: 20130627
  Serious: Yes (Other)
  Sender: FDA-Public Use
  Company Number: CH-AMGEN-CHESP2012064791

PATIENT
  Age: 70 Year
  Sex: Female
  Weight: 65 kg

DRUGS (4)
  1. VECTIBIX [Suspect]
     Indication: COLORECTAL CANCER METASTATIC
     Dosage: 60 mg, q2wk
     Route: 042
     Dates: start: 20120711
  2. CAMPTO [Concomitant]
     Dosage: 125 mg/m2, UNK
     Route: 042
     Dates: start: 20120711, end: 20121102
  3. 5-FU /00098801/ [Concomitant]
     Dosage: 500 mg/m2, q2wk
     Route: 042
  4. LEUCOVORIN /00566701/ [Concomitant]
     Dosage: 20 mg/m2, UNK
     Route: 042

REACTIONS (1)
  - Mucosal inflammation [Recovering/Resolving]
